FAERS Safety Report 24746257 (Version 1)
Quarter: 2024Q4

REPORT INFORMATION
  Report Type: Spontaneous
  Country: US (occurrence: US)
  Receive Date: 20241218
  Receipt Date: 20241218
  Transmission Date: 20250115
  Serious: No
  Sender: ALK-ABELLO
  Company Number: US-ALK-ABELLO A/S-2024AA004483

PATIENT

DRUGS (4)
  1. JUGLANS REGIA POLLEN [Suspect]
     Active Substance: JUGLANS REGIA POLLEN
     Indication: Skin test
     Dosage: UNK
     Dates: start: 20241001
  2. ALLERGENIC EXTRACT- PEANUT ARACHIS HYPOGAEA [Suspect]
     Active Substance: ALLERGENIC EXTRACT- PEANUT ARACHIS HYPOGAEA
     Indication: Skin test
     Dosage: UNK
     Dates: start: 20241001
  3. PREDNISOLONE SODIUM PHOSPHATE [Concomitant]
     Active Substance: PREDNISOLONE SODIUM PHOSPHATE
     Indication: Product used for unknown indication
     Dosage: 45 MILLILITER, 15 MG/5 ML (3 MG/ML) ORAL SOLUTION
     Route: 048
     Dates: start: 20240927
  4. AUVI-Q [Concomitant]
     Active Substance: EPINEPHRINE
     Dosage: 0.15 MG/0.15 ML AUTO-INJECTOR

REACTIONS (2)
  - Oral allergy syndrome [Unknown]
  - False negative investigation result [Unknown]
